APPROVED DRUG PRODUCT: PERGOLIDE MESYLATE
Active Ingredient: PERGOLIDE MESYLATE
Strength: EQ 0.25MG BASE
Dosage Form/Route: TABLET;ORAL
Application: A076061 | Product #002
Applicant: STRIDES PHARMA GLOBAL PTE LTD
Approved: Nov 27, 2002 | RLD: No | RS: No | Type: DISCN